FAERS Safety Report 4749670-9 (Version None)
Quarter: 2005Q3

REPORT INFORMATION
  Report Type: 
  Country: None (occurrence: None)
  Receive Date: 20050822
  Receipt Date: 20050615
  Transmission Date: 20060218
  Serious: Yes (Other)
  Sender: FDA-Public Use
  Company Number: US-ROCHE-408057

PATIENT
  Age: 27 Year
  Sex: Male
  Weight: 65.8 kg

DRUGS (1)
  1. ACCUTANE [Suspect]
     Indication: ACNE
     Route: 048
     Dates: start: 20030508, end: 20040109

REACTIONS (11)
  - DEPRESSION [None]
  - DRUG EFFECT DECREASED [None]
  - DRUG INEFFECTIVE [None]
  - DRY SKIN [None]
  - ECZEMA [None]
  - ERYTHEMA [None]
  - LIP DRY [None]
  - MUSCLE TWITCHING [None]
  - SEBORRHOEIC DERMATITIS [None]
  - SLEEP DISORDER [None]
  - SUICIDAL IDEATION [None]
